FAERS Safety Report 7973760-0 (Version None)
Quarter: 2011Q4

REPORT INFORMATION
  Report Type: 
  Country: None (occurrence: None)
  Receive Date: 20111213
  Receipt Date: 20111207
  Transmission Date: 20120403
  Serious: Yes (Other)
  Sender: FDA-Public Use
  Company Number: PHHY2011MX107822

PATIENT
  Sex: Female

DRUGS (7)
  1. ZOLEDRONOC ACID [Suspect]
     Indication: OSTEOPOROSIS
     Dosage: 5 MG/100 ML, EACH YEAR
     Route: 042
     Dates: start: 20091101
  2. VITAMIN TAB [Concomitant]
  3. ARALEN [Concomitant]
     Indication: OSTEOPOROSIS
     Dates: start: 20091001
  4. IMURAN [Concomitant]
     Indication: INFLAMMATION
     Dates: start: 20100601
  5. OS-CAL D [Concomitant]
     Indication: OSTEOPOROSIS
     Dates: start: 20091001
  6. PROPRANOLOL [Concomitant]
     Indication: HYPERTENSION
     Dates: start: 20110624
  7. ASPIRIN [Concomitant]
     Dates: start: 20090101

REACTIONS (2)
  - AGITATION [None]
  - ANAEMIA [None]
